FAERS Safety Report 5391819-1 (Version None)
Quarter: 2007Q3

REPORT INFORMATION
  Report Type: 
  Country: None (occurrence: None)
  Receive Date: 20070718
  Receipt Date: 20070710
  Transmission Date: 20080115
  Serious: Yes (Other)
  Sender: FDA-Public Use
  Company Number: CHPA2007US06861

PATIENT
  Age: 72 Year
  Sex: Female
  Weight: 81.6 kg

DRUGS (16)
  1. TRANSDERM SCOP [Suspect]
     Indication: MOTION SICKNESS
     Dosage: 1.5 MG, ONCE/SINGLE, TRANSDERMAL
     Route: 062
     Dates: start: 20070421, end: 20070422
  2. ZOLOFT [Concomitant]
  3. ANTIHYPERTENSIVE (NO INGREDIENTS/SUBSTANCES) [Concomitant]
  4. REGLAN/USA/ (METOCLOPRAMIDE HYDROCHLORIDE) [Concomitant]
  5. ZANTAC 150 [Concomitant]
  6. VIVELLE [Concomitant]
  7. NOVOLOG [Concomitant]
  8. NITRO-DUR [Concomitant]
  9. LANTUS [Concomitant]
  10. VITAMIN B12 [Concomitant]
  11. LASIX [Concomitant]
  12. CLARITIN [Concomitant]
  13. PHENERGAN ^AVENTIS PAHRMA^ (PROMETHAZINE HYDROCHLORIDE) [Concomitant]
  14. LORTAB [Concomitant]
  15. REQUIP [Concomitant]
  16. CLONIDINE [Concomitant]

REACTIONS (7)
  - ATRIOVENTRICULAR BLOCK FIRST DEGREE [None]
  - BUNDLE BRANCH BLOCK RIGHT [None]
  - CONCOMITANT DISEASE AGGRAVATED [None]
  - CONFUSIONAL STATE [None]
  - DISORIENTATION [None]
  - MEMORY IMPAIRMENT [None]
  - QRS AXIS ABNORMAL [None]
